FAERS Safety Report 6127031-8 (Version None)
Quarter: 2009Q1

REPORT INFORMATION
  Report Type: 
  Country: None (occurrence: None)
  Receive Date: 20090320
  Receipt Date: 20090318
  Transmission Date: 20090719
  Serious: Yes (Hospitalization)
  Sender: FDA-Public Use
  Company Number: JP-B.I. PHARMACEUTICALS,INC./RIDGEFIELD-2008-BP-16456NB

PATIENT
  Sex: Male
  Weight: 69.6 kg

DRUGS (4)
  1. SPIRIVA [Suspect]
     Indication: EMPHYSEMA
     Dosage: 18MCG
     Route: 055
     Dates: start: 20060515
  2. ONON [Concomitant]
     Indication: ASTHMA
     Dosage: 4ANZ
     Route: 048
     Dates: start: 20021205
  3. THEO-DUR [Concomitant]
     Indication: EMPHYSEMA
     Dosage: 100MG
     Route: 048
     Dates: start: 20021205
  4. TOUGHMAC E [Concomitant]
     Indication: GASTRITIS
     Dosage: 3ANZ
     Route: 048
     Dates: start: 20021205

REACTIONS (1)
  - MACULAR DEGENERATION [None]
